FAERS Safety Report 8817364 (Version 5)
Quarter: 2014Q3

REPORT INFORMATION
  Report Type: Report from Study
  Country: JP (occurrence: JP)
  Receive Date: 20121001
  Receipt Date: 20140721
  Transmission Date: 20150326
  Serious: Yes (Other)
  Sender: FDA-Public Use
  Company Number: JP-ASTELLAS-2011JP001215

PATIENT
  Age: 41 Year
  Sex: Female
  Weight: 63 kg

DRUGS (51)
  1. PREDNISOLONE. [Suspect]
     Active Substance: PREDNISOLONE
     Route: 048
     Dates: start: 20130305
  2. IMURAN [Concomitant]
     Active Substance: AZATHIOPRINE
     Route: 048
     Dates: start: 20111115
  3. BIOFERMIN                          /01617201/ [Concomitant]
     Active Substance: BACILLUS SUBTILIS\LACTOBACILLUS ACIDOPHILUS\STREPTOCOCCUS FAECAIS
     Indication: ENTEROCOLITIS
     Route: 048
     Dates: start: 20120621, end: 20120802
  4. MEIACT [Concomitant]
     Active Substance: CEFDITOREN PIVOXIL
     Indication: BRONCHITIS
     Route: 048
     Dates: start: 20120802, end: 20120806
  5. ADOAIR [Concomitant]
     Active Substance: FLUTICASONE PROPIONATE\SALMETEROL XINAFOATE
     Indication: ASTHMA
     Route: 055
     Dates: start: 20090525
  6. KAKKONTO [Concomitant]
     Active Substance: HERBALS
     Indication: NASOPHARYNGITIS
     Route: 048
     Dates: start: 20111114, end: 20111117
  7. IMURAN [Concomitant]
     Active Substance: AZATHIOPRINE
     Indication: LUPUS NEPHRITIS
     Route: 048
     Dates: start: 20101227, end: 20110307
  8. FLAVITAN [Concomitant]
     Active Substance: FLAVIN ADENINE DINUCLEOTIDE
     Indication: CHEILITIS
     Route: 048
     Dates: start: 20121210, end: 20121223
  9. TERNELIN [Concomitant]
     Active Substance: TIZANIDINE
     Indication: HEADACHE
     Route: 048
     Dates: end: 20090525
  10. LOXONIN [Concomitant]
     Active Substance: LOXOPROFEN SODIUM
     Indication: SLE ARTHRITIS
     Route: 048
     Dates: start: 20080728
  11. LOXONIN [Concomitant]
     Active Substance: LOXOPROFEN SODIUM
     Indication: ARTHRITIS
  12. JANUVIA [Concomitant]
     Active Substance: SITAGLIPTIN PHOSPHATE
     Route: 048
     Dates: start: 20130305
  13. ORADOL                             /00093302/ [Concomitant]
     Indication: NASOPHARYNGITIS
     Route: 049
     Dates: start: 20120520, end: 20120526
  14. PREDNISOLONE. [Suspect]
     Active Substance: PREDNISOLONE
     Indication: LUPUS NEPHRITIS
     Route: 048
     Dates: end: 20090907
  15. PREDNISOLONE. [Suspect]
     Active Substance: PREDNISOLONE
     Route: 048
     Dates: start: 20101228, end: 20110307
  16. CRAVIT [Concomitant]
     Active Substance: LEVOFLOXACIN
     Indication: NASOPHARYNGITIS
     Route: 048
     Dates: start: 20120510, end: 20120514
  17. LOXONIN [Concomitant]
     Active Substance: LOXOPROFEN SODIUM
     Indication: ARTHRALGIA
  18. ADOAIR [Concomitant]
     Active Substance: FLUTICASONE PROPIONATE\SALMETEROL XINAFOATE
     Dosage: ??
     Route: 055
     Dates: start: 20120802
  19. MUCODYNE [Concomitant]
     Active Substance: CARBOCYSTEINE
     Indication: BRONCHITIS
     Route: 048
     Dates: start: 20100125, end: 20100131
  20. JANUVIA [Concomitant]
     Active Substance: SITAGLIPTIN PHOSPHATE
     Indication: DIABETES MELLITUS
     Route: 048
     Dates: start: 20110404, end: 20110704
  21. TRANSAMIN [Concomitant]
     Active Substance: TRANEXAMIC ACID
     Indication: NASOPHARYNGITIS
     Route: 048
     Dates: start: 20120510, end: 20120516
  22. IMURAN [Concomitant]
     Active Substance: AZATHIOPRINE
     Route: 048
     Dates: start: 20110607, end: 20111114
  23. GASMOTIN [Concomitant]
     Active Substance: MOSAPRIDE CITRATE
     Indication: ENTEROCOLITIS
     Route: 048
     Dates: start: 20120621, end: 20120802
  24. THEOLONG [Concomitant]
     Active Substance: THEOPHYLLINE
     Indication: ASTHMA
     Route: 048
     Dates: start: 20120802, end: 20130127
  25. THEOLONG [Concomitant]
     Active Substance: THEOPHYLLINE
     Route: 048
     Dates: start: 20130128
  26. SALCOAT [Concomitant]
     Indication: STOMATITIS
     Route: 061
     Dates: start: 20121004, end: 20121023
  27. FLAVITAN [Concomitant]
     Active Substance: FLAVIN ADENINE DINUCLEOTIDE
     Indication: STOMATITIS
     Route: 048
     Dates: start: 20090309, end: 20090709
  28. PL [Concomitant]
     Active Substance: ACETAMINOPHEN\CAFFEINE\PROMETHAZINE\SALICYLAMIDE
     Indication: NASOPHARYNGITIS
     Route: 048
     Dates: start: 20100927, end: 20100930
  29. TRYPTANOL                          /00002202/ [Concomitant]
     Active Substance: AMITRIPTYLINE
     Indication: HEADACHE
     Route: 048
     Dates: start: 20120815, end: 20120828
  30. MUCOSTA [Concomitant]
     Active Substance: REBAMIPIDE
     Indication: PROPHYLAXIS
     Route: 048
     Dates: end: 20111113
  31. FOSAMAX [Concomitant]
     Active Substance: ALENDRONATE SODIUM
     Indication: PROPHYLAXIS
     Route: 048
  32. CRAVIT [Concomitant]
     Active Substance: LEVOFLOXACIN
     Indication: ARTHRITIS
     Route: 048
     Dates: start: 20091204, end: 20091210
  33. MUCODYNE [Concomitant]
     Active Substance: CARBOCYSTEINE
     Route: 048
     Dates: start: 20130128, end: 20130210
  34. RESPLEN [Concomitant]
     Active Substance: EPRAZINONE
     Indication: BRONCHITIS
     Route: 048
     Dates: start: 20100125, end: 20100131
  35. PROMAC                             /00024401/ [Concomitant]
     Indication: PROPHYLAXIS AGAINST GASTROINTESTINAL ULCER
     Route: 048
     Dates: start: 20111114
  36. PREDNISOLONE. [Suspect]
     Active Substance: PREDNISOLONE
     Route: 048
     Dates: start: 20090908, end: 20100927
  37. MEIACT [Concomitant]
     Active Substance: CEFDITOREN PIVOXIL
     Route: 048
     Dates: start: 20130128, end: 20130202
  38. TERNELIN [Concomitant]
     Active Substance: TIZANIDINE
     Indication: MUSCULOSKELETAL STIFFNESS
     Route: 048
     Dates: start: 20090409
  39. PREDNISOLONE. [Suspect]
     Active Substance: PREDNISOLONE
     Route: 048
     Dates: start: 20100928, end: 20101227
  40. TAKEPRON [Concomitant]
     Active Substance: LANSOPRAZOLE
     Indication: PROPHYLAXIS
     Route: 048
  41. TRYPTANOL                          /00002202/ [Concomitant]
     Active Substance: AMITRIPTYLINE
     Route: 048
     Dates: start: 20120829, end: 20130127
  42. DEPAS [Concomitant]
     Active Substance: ETIZOLAM
     Indication: INSOMNIA
     Dosage: 0.5 MG, ONCE DAILY
     Route: 048
     Dates: start: 20090126, end: 20090525
  43. HOKUNALIN [Concomitant]
     Active Substance: TULOBUTEROL
     Indication: ASTHMA
     Route: 062
     Dates: start: 20090525, end: 20120226
  44. LOXONIN [Concomitant]
     Active Substance: LOXOPROFEN SODIUM
     Indication: HEADACHE
     Route: 048
     Dates: end: 20080727
  45. TACROLIMUS. [Suspect]
     Active Substance: TACROLIMUS
     Indication: LUPUS NEPHRITIS
     Route: 048
     Dates: start: 20080403
  46. PREDNISOLONE. [Suspect]
     Active Substance: PREDNISOLONE
     Route: 048
     Dates: start: 20110308, end: 20130304
  47. IMURAN [Concomitant]
     Active Substance: AZATHIOPRINE
     Route: 048
     Dates: start: 20110308, end: 20110606
  48. FOSAMAX [Concomitant]
     Active Substance: ALENDRONATE SODIUM
     Indication: PROPHYLAXIS
     Route: 048
  49. ZITHROMAC [Concomitant]
     Active Substance: AZITHROMYCIN DIHYDRATE
     Indication: BRONCHITIS
     Route: 048
     Dates: start: 20100125, end: 20100127
  50. JANUVIA [Concomitant]
     Active Substance: SITAGLIPTIN PHOSPHATE
     Route: 048
     Dates: start: 20110705, end: 20130304
  51. HIBON [Concomitant]
     Active Substance: RIBOFLAVIN
     Indication: GLOSSITIS
     Route: 048
     Dates: start: 20101122, end: 20110201

REACTIONS (13)
  - Nasopharyngitis [Recovered/Resolved]
  - Stomatitis [Recovering/Resolving]
  - Headache [Recovering/Resolving]
  - Arthritis [Recovering/Resolving]
  - Diabetes mellitus [Not Recovered/Not Resolved]
  - Cheilitis [Recovering/Resolving]
  - Blood pressure increased [Recovering/Resolving]
  - Bronchitis [Recovering/Resolving]
  - Asthma [Recovering/Resolving]
  - Enterocolitis [Recovered/Resolved]
  - Insomnia [Recovering/Resolving]
  - Musculoskeletal stiffness [Recovering/Resolving]
  - Glossitis [Recovering/Resolving]

NARRATIVE: CASE EVENT DATE: 200812
